FAERS Safety Report 5595049-X (Version None)
Quarter: 2008Q1

REPORT INFORMATION
  Report Type: 
  Country: None (occurrence: None)
  Receive Date: 20080117
  Receipt Date: 20080109
  Transmission Date: 20080703
  Serious: Yes (Death)
  Sender: FDA-Public Use
  Company Number: ZA-ROCHE-540412

PATIENT
  Sex: Female

DRUGS (1)
  1. TORADOL [Suspect]
     Route: 042

REACTIONS (2)
  - BRAIN INJURY [None]
  - COMA [None]
